FAERS Safety Report 7142792-7 (Version None)
Quarter: 2010Q4

REPORT INFORMATION
  Report Type: 
  Country: None (occurrence: None)
  Receive Date: 20101207
  Receipt Date: 20101130
  Transmission Date: 20110411
  Serious: Yes (Death, Other)
  Sender: FDA-Public Use
  Company Number: US-AMGEN-USASP2010000548

PATIENT

DRUGS (4)
  1. NPLATE [Suspect]
     Indication: IDIOPATHIC THROMBOCYTOPENIC PURPURA
     Dosage: 10 A?G/KG, UNK
     Dates: start: 20090428, end: 20090708
  2. CORTICOSTEROIDS [Concomitant]
     Dosage: UNK
     Dates: start: 20090418
  3. IMMUNOGLOBULINS [Concomitant]
     Dosage: UNK
     Dates: start: 20090419, end: 20090423
  4. RITUXIMAB [Concomitant]
     Dosage: UNK
     Dates: start: 20090425

REACTIONS (4)
  - ASTHENIA [None]
  - DEMENTIA [None]
  - DRUG INEFFECTIVE [None]
  - MYELODYSPLASTIC SYNDROME [None]
